FAERS Safety Report 23896970 (Version 1)
Quarter: 2024Q2

REPORT INFORMATION
  Report Type: Spontaneous
  Country: JP (occurrence: None)
  Receive Date: 20240524
  Receipt Date: 20240524
  Transmission Date: 20240716
  Serious: Yes (Other)
  Sender: FDA-Public Use
  Company Number: 2024A118414

PATIENT
  Age: 81 Year
  Sex: Female

DRUGS (2)
  1. TAGRISSO [Suspect]
     Active Substance: OSIMERTINIB
     Indication: Non-small cell lung cancer
     Route: 048
  2. TAGRISSO [Suspect]
     Active Substance: OSIMERTINIB
     Indication: Non-small cell lung cancer
     Route: 048

REACTIONS (8)
  - Neoplasm malignant [Unknown]
  - Pneumonia [Unknown]
  - Tumour marker increased [Unknown]
  - Blood pressure increased [Unknown]
  - Gait disturbance [Unknown]
  - Sleep disorder due to a general medical condition [Unknown]
  - Onychalgia [Recovered/Resolved]
  - Paronychia [Recovered/Resolved]

NARRATIVE: CASE EVENT DATE: 20240101
